FAERS Safety Report 7929722-2 (Version None)
Quarter: 2011Q4

REPORT INFORMATION
  Report Type: 
  Country: None (occurrence: None)
  Receive Date: 20111116
  Receipt Date: 20111108
  Transmission Date: 20120403
  Serious: Yes (Other)
  Sender: FDA-Public Use
  Company Number: AUR-APL-2011-05786

PATIENT
  Sex: Female

DRUGS (4)
  1. PAXIL [Suspect]
     Indication: PRODUCT USED FOR UNKNOWN INDICATION
  2. LORAZEPAM [Suspect]
     Indication: PRODUCT USED FOR UNKNOWN INDICATION
  3. PAROXETINE HCL [Suspect]
     Indication: PRODUCT USED FOR UNKNOWN INDICATION
  4. PAROXETINE HYDROCHLORIDE [Suspect]
     Indication: PRODUCT USED FOR UNKNOWN INDICATION

REACTIONS (9)
  - ANXIETY [None]
  - DRUG INTERACTION [None]
  - DEPRESSION [None]
  - HOMICIDE [None]
  - STAB WOUND [None]
  - SOMNAMBULISM [None]
  - MULTIPLE INJURIES [None]
  - AKATHISIA [None]
  - SELF INJURIOUS BEHAVIOUR [None]
